FAERS Safety Report 19230098 (Version 4)
Quarter: 2021Q3

REPORT INFORMATION
  Report Type: Spontaneous
  Country: US (occurrence: US)
  Receive Date: 20210507
  Receipt Date: 20210830
  Transmission Date: 20211014
  Serious: Yes (Hospitalization, Other)
  Sender: FDA-Public Use
  Company Number: US-SUN PHARMACEUTICAL INDUSTRIES LTD-2021R1-295348

PATIENT
  Age: 66 Year
  Sex: Female
  Weight: 78.01 kg

DRUGS (4)
  1. EPOPROSTENOL. [Suspect]
     Active Substance: EPOPROSTENOL
     Indication: PULMONARY ARTERIAL HYPERTENSION
     Dosage: 16 NG/KG/MI,CONTINUOUS
     Route: 042
     Dates: start: 20210329
  2. EPOPROSTENOL. [Suspect]
     Active Substance: EPOPROSTENOL
     Dosage: 17 NG/KG/MIN,CONTINUOUS
     Route: 042
     Dates: start: 20210329
  3. TADALAFIL. [Concomitant]
     Active Substance: TADALAFIL
     Indication: PRODUCT USED FOR UNKNOWN INDICATION
     Dosage: UNK
     Route: 065
  4. EPOPROSTENOL. [Suspect]
     Active Substance: EPOPROSTENOL
     Dosage: 17 NG/KG/MIN,CONTINUOUS
     Route: 042
     Dates: start: 20210329

REACTIONS (7)
  - Catheter site swelling [Unknown]
  - Catheter site discharge [Unknown]
  - Road traffic accident [Unknown]
  - Device related infection [Unknown]
  - Catheter site erythema [Unknown]
  - Catheter site pain [Unknown]
  - Catheter site infection [Unknown]

NARRATIVE: CASE EVENT DATE: 20210402
